FAERS Safety Report 6104345-9 (Version None)
Quarter: 2009Q1

REPORT INFORMATION
  Report Type: 
  Country: None (occurrence: None)
  Receive Date: 20090305
  Receipt Date: 20090221
  Transmission Date: 20090719
  Serious: Yes (Hospitalization, Other)
  Sender: FDA-Public Use
  Company Number: US-PFIZER INC-2009152792

PATIENT
  Age: 31 Year
  Sex: Male

DRUGS (4)
  1. CHANTIX [Suspect]
     Indication: SMOKING CESSATION THERAPY
     Dosage: UNK
  2. NORCO [Concomitant]
     Dosage: UNK
  3. ATRIPLA [Concomitant]
     Dosage: UNK
  4. BUPROPION [Concomitant]
     Dosage: UNK

REACTIONS (3)
  - INCOHERENT [None]
  - NEUROLOGICAL SYMPTOM [None]
  - PSYCHIATRIC SYMPTOM [None]
